FAERS Safety Report 7739268-2 (Version None)
Quarter: 2011Q3

REPORT INFORMATION
  Report Type: 
  Country: None (occurrence: None)
  Receive Date: 20110909
  Receipt Date: 20110829
  Transmission Date: 20111222
  Serious: Yes (Other)
  Sender: FDA-Public Use
  Company Number: US-JNJFOC-20110902765

PATIENT

DRUGS (1)
  1. NUCYNTA [Suspect]
     Indication: PROCEDURAL PAIN
     Route: 048

REACTIONS (3)
  - ABNORMAL BEHAVIOUR [None]
  - DRUG INEFFECTIVE [None]
  - HALLUCINATION [None]
